FAERS Safety Report 14333122 (Version 4)
Quarter: 2019Q4

REPORT INFORMATION
  Report Type: Spontaneous
  Country: NL (occurrence: NL)
  Receive Date: 20171228
  Receipt Date: 20191122
  Transmission Date: 20200122
  Serious: Yes (Other)
  Sender: FDA-Public Use
  Company Number: NL-PFIZER INC-2015454936

PATIENT
  Age: 78 Year
  Sex: Female

DRUGS (5)
  1. SOMAVERT [Suspect]
     Active Substance: PEGVISOMANT
     Indication: ACROMEGALY
     Dosage: 20 MG, ONCE DAILY
     Route: 058
     Dates: start: 20110322
  2. CALCIUM [Concomitant]
     Active Substance: CALCIUM
     Dosage: 1.25 G, 1X/DAY
  3. ALCOHOL. [Concomitant]
     Active Substance: ALCOHOL
     Dosage: 0.7 ML, UNK
  4. ALENDRONIC ACID [Suspect]
     Active Substance: ALENDRONIC ACID
     Dosage: UNK
     Dates: end: 201511
  5. LISINOPRIL. [Concomitant]
     Active Substance: LISINOPRIL
     Dosage: 20 MG, 1X/DAY

REACTIONS (5)
  - Eye inflammation [Not Recovered/Not Resolved]
  - Visual impairment [Not Recovered/Not Resolved]
  - Cataract [Recovered/Resolved]
  - Dry eye [Not Recovered/Not Resolved]
  - Ocular discomfort [Not Recovered/Not Resolved]

NARRATIVE: CASE EVENT DATE: 201911
